FAERS Safety Report 7396921-0 (Version None)
Quarter: 2011Q2

REPORT INFORMATION
  Report Type: 
  Country: None (occurrence: None)
  Receive Date: 20110406
  Receipt Date: 20110309
  Transmission Date: 20111010
  Serious: No
  Sender: FDA-Public Use
  Company Number: US-BAYER-2011-023542

PATIENT
  Sex: Female
  Weight: 63 kg

DRUGS (13)
  1. FISH OIL [Concomitant]
  2. ALPRAZOLAM [Concomitant]
  3. CYCLIZINE HYDROCHLORIDE [Concomitant]
  4. ALEVE (CAPLET) [Suspect]
     Indication: BACK PAIN
     Dosage: UNK
     Route: 048
     Dates: start: 20110301, end: 20110308
  5. MIRALAX [Concomitant]
  6. VIVARIN [Concomitant]
  7. CALCIUM [Concomitant]
  8. MULTI-VITAMIN [Concomitant]
  9. MAREZINE [Concomitant]
  10. VITAMIN D [Concomitant]
  11. VITAMIN B12 [Concomitant]
  12. DILTIAZEM HCL [Concomitant]
  13. SULFAMETHOXAZOLE W/TRIMETHOPRIM [Concomitant]

REACTIONS (2)
  - JOINT SWELLING [None]
  - ARTHRALGIA [None]
